FAERS Safety Report 20956376 (Version 1)
Quarter: 2022Q2

REPORT INFORMATION
  Report Type: Spontaneous
  Country: US (occurrence: None)
  Receive Date: 20220614
  Receipt Date: 20220614
  Transmission Date: 20220721
  Serious: Yes (Life-Threatening)
  Sender: FDA-Public Use
  Company Number: None

PATIENT
  Age: 95 Year
  Sex: Male
  Weight: 67 kg

DRUGS (1)
  1. CEFTRIAXONE SODIUM [Suspect]
     Active Substance: CEFTRIAXONE SODIUM
     Indication: Upper respiratory tract infection
     Dosage: 2 GM EVERY DAY IV
     Route: 042
     Dates: start: 20220131, end: 20220202

REACTIONS (2)
  - Thrombocytopenia [None]
  - Haemoglobin decreased [None]

NARRATIVE: CASE EVENT DATE: 20220223
